FAERS Safety Report 12633325 (Version 2)
Quarter: 2016Q3

REPORT INFORMATION
  Report Type: Spontaneous
  Country: US (occurrence: US)
  Receive Date: 20160808
  Receipt Date: 20160808
  Transmission Date: 20161109
  Serious: No
  Sender: FDA-Public Use
  Company Number: US-BEH-2016060531

PATIENT
  Sex: Male
  Weight: 90 kg

DRUGS (26)
  1. HIZENTRA [Suspect]
     Active Substance: HUMAN IMMUNOGLOBULIN G
     Indication: IMMUNODEFICIENCY COMMON VARIABLE
     Route: 058
  2. SINGULAIR [Concomitant]
     Active Substance: MONTELUKAST SODIUM
  3. FISH OIL [Concomitant]
     Active Substance: FISH OIL
  4. LIDOCAINE/PRILOCAINE [Concomitant]
     Active Substance: LIDOCAINE\PRILOCAINE
  5. FINASTERIDE. [Concomitant]
     Active Substance: FINASTERIDE
  6. CALCIUM CITRATE-VIT D [Concomitant]
  7. VITAMIN D3 [Concomitant]
     Active Substance: CHOLECALCIFEROL
  8. ACETAMINOPHEN. [Concomitant]
     Active Substance: ACETAMINOPHEN
  9. LIDOCAINE. [Concomitant]
     Active Substance: LIDOCAINE
  10. PLAQUENIL [Concomitant]
     Active Substance: HYDROXYCHLOROQUINE SULFATE
  11. AVODART [Concomitant]
     Active Substance: DUTASTERIDE
  12. CLONAZEPAM. [Concomitant]
     Active Substance: CLONAZEPAM
  13. BACTRIM [Concomitant]
     Active Substance: SULFAMETHOXAZOLE\TRIMETHOPRIM
  14. TRIAMTERENE-HCTZ [Concomitant]
     Active Substance: HYDROCHLOROTHIAZIDE\TRIAMTERENE
  15. ALBUTEROL. [Concomitant]
     Active Substance: ALBUTEROL
  16. DIPHENHYDRAMINE. [Concomitant]
     Active Substance: DIPHENHYDRAMINE
  17. CYMBALTA [Concomitant]
     Active Substance: DULOXETINE HYDROCHLORIDE
  18. PREDNISONE. [Concomitant]
     Active Substance: PREDNISONE
  19. EPIPEN [Concomitant]
     Active Substance: EPINEPHRINE
  20. REQUIP [Concomitant]
     Active Substance: ROPINIROLE HYDROCHLORIDE
  21. POTASSIUM CL ER [Concomitant]
     Active Substance: POTASSIUM CHLORIDE
  22. RECLAST [Concomitant]
     Active Substance: ZOLEDRONIC ACID
  23. ADVAIR HFA [Concomitant]
     Active Substance: FLUTICASONE PROPIONATE\SALMETEROL XINAFOATE
  24. DILTIAZEM. [Concomitant]
     Active Substance: DILTIAZEM
  25. ZYRTEC [Concomitant]
     Active Substance: CETIRIZINE HYDROCHLORIDE
  26. FIBER-TABS [Concomitant]

REACTIONS (1)
  - Bronchitis [Unknown]
